FAERS Safety Report 5680946-7 (Version None)
Quarter: 2008Q1

REPORT INFORMATION
  Report Type: 
  Country: None (occurrence: None)
  Receive Date: 20080326
  Receipt Date: 20080314
  Transmission Date: 20080703
  Serious: Yes (Other)
  Sender: FDA-Public Use
  Company Number: US-PFIZER INC-2008015422

PATIENT
  Age: 47 Year
  Sex: Female

DRUGS (3)
  1. LYRICA [Suspect]
     Indication: PAIN
  2. VALTREX [Concomitant]
  3. ACYCLOVIR [Concomitant]

REACTIONS (4)
  - CORNEAL OPACITY [None]
  - PAIN [None]
  - VISION BLURRED [None]
  - VISUAL ACUITY REDUCED [None]
